FAERS Safety Report 5719791-2 (Version None)
Quarter: 2008Q2

REPORT INFORMATION
  Report Type: 
  Country: None (occurrence: None)
  Receive Date: 20080424
  Receipt Date: 20080414
  Transmission Date: 20081010
  Serious: Yes (Hospitalization, Other)
  Sender: FDA-Public Use
  Company Number: 2007BI018346

PATIENT
  Age: 57 Year
  Sex: Female
  Weight: 68.0396 kg

DRUGS (7)
  1. TYSABRI [Suspect]
     Indication: MULTIPLE SCLEROSIS
     Dosage: 300 MG; QM; IV
     Route: 042
     Dates: start: 20070730, end: 20070827
  2. COREG [Concomitant]
  3. STEROIDAL EYE DROPS [Concomitant]
  4. IRON [Concomitant]
  5. ASPIRIN [Concomitant]
  6. LIPITOR [Concomitant]
  7. CAPTOPRIL [Concomitant]

REACTIONS (9)
  - ANAPHYLACTIC REACTION [None]
  - CARDIAC FAILURE CONGESTIVE [None]
  - CONVULSION [None]
  - INFUSION RELATED REACTION [None]
  - OXYGEN SATURATION DECREASED [None]
  - RESPIRATORY RATE INCREASED [None]
  - SKIN DISCOLOURATION [None]
  - SYNCOPE [None]
  - UNEVALUABLE EVENT [None]
